FAERS Safety Report 4982982-2 (Version None)
Quarter: 2006Q2

REPORT INFORMATION
  Report Type: 
  Country: None (occurrence: None)
  Receive Date: 20060426
  Receipt Date: 20060417
  Transmission Date: 20061013
  Serious: Yes (Hospitalization, Other)
  Sender: FDA-Public Use
  Company Number: US-JNJFOC-20060300087

PATIENT
  Sex: Male
  Weight: 55.1 kg

DRUGS (7)
  1. REMICADE [Suspect]
     Dosage: TOTAL OF 3 INFUSIONS
     Route: 042
  2. REMICADE [Suspect]
     Route: 042
  3. REMICADE [Suspect]
     Indication: CROHN'S DISEASE
     Route: 042
  4. PREDNISONE [Concomitant]
  5. AZATHIOPRINE [Concomitant]
     Indication: CROHN'S DISEASE
  6. PRILOSEC [Concomitant]
     Indication: CROHN'S DISEASE
  7. METRONIDAZOLE [Concomitant]
     Indication: CROHN'S DISEASE

REACTIONS (3)
  - ACUTE RESPIRATORY DISTRESS SYNDROME [None]
  - LUNG DISORDER [None]
  - PNEUMOCYSTIS JIROVECI PNEUMONIA [None]
